FAERS Safety Report 10599598 (Version 1)
Quarter: 2014Q4

REPORT INFORMATION
  Report Type: Report from Study
  Country: CA (occurrence: CA)
  Receive Date: 20141121
  Receipt Date: 20141121
  Transmission Date: 20150529
  Serious: Yes (Other)
  Sender: FDA-Public Use
  Company Number: CA-JNJFOC-20141109396

PATIENT
  Age: 23 Year
  Sex: Female
  Weight: 78 kg

DRUGS (1)
  1. REMICADE [Suspect]
     Active Substance: INFLIXIMAB
     Indication: CROHN^S DISEASE
     Route: 042
     Dates: start: 20140128

REACTIONS (3)
  - Fatigue [Unknown]
  - Eczema [Unknown]
  - Decreased appetite [Unknown]

NARRATIVE: CASE EVENT DATE: 201411
